FAERS Safety Report 8345922-4 (Version None)
Quarter: 2012Q2

REPORT INFORMATION
  Report Type: 
  Country: None (occurrence: None)
  Receive Date: 20120509
  Receipt Date: 20120411
  Transmission Date: 20120825
  Serious: Yes (Other)
  Sender: FDA-Public Use
  Company Number: JP-BAYER-2012-004341

PATIENT
  Age: 60 Year
  Sex: Female

DRUGS (4)
  1. NEXAVAR [Suspect]
     Indication: HEPATIC NEOPLASM MALIGNANT
     Dosage: 400 MG, UNK
     Route: 048
  2. INDERAL [Concomitant]
     Indication: HYPERTENSION
     Route: 048
  3. NEXAVAR [Suspect]
     Dosage: 600 MG, UNK
     Route: 048
  4. TRICHLORMETHIAZIDE [Concomitant]
     Indication: HYPERTENSION
     Dosage: UNK
     Route: 048

REACTIONS (2)
  - LACUNAR INFARCTION [None]
  - HYPOAESTHESIA [None]
